FAERS Safety Report 9575210 (Version 5)
Quarter: 2014Q1

REPORT INFORMATION
  Report Type: Report from Study
  Country: IT (occurrence: IT)
  Receive Date: 20131001
  Receipt Date: 20140117
  Transmission Date: 20141002
  Serious: Yes (Life-Threatening, Hospitalization)
  Sender: FDA-Public Use
  Company Number: IT-GLAXOSMITHKLINE-B0926060A

PATIENT
  Age: 69 Year
  Sex: Male
  Weight: 73 kg

DRUGS (9)
  1. OFATUMUMAB [Suspect]
     Indication: B-CELL LYMPHOMA
     Route: 042
     Dates: start: 20130605, end: 20130925
  2. BENDAMUSTINE [Suspect]
     Indication: B-CELL LYMPHOMA
     Route: 042
     Dates: start: 20130605, end: 20130829
  3. NITRODERM [Concomitant]
     Indication: ISCHAEMIC CARDIOMYOPATHY
     Dates: start: 1983
  4. METOPROLOL [Concomitant]
     Indication: ISCHAEMIC CARDIOMYOPATHY
     Dates: start: 1983
  5. ENALAPRIL [Concomitant]
     Indication: ISCHAEMIC CARDIOMYOPATHY
     Route: 048
  6. GLIMEPIRIDE [Concomitant]
     Dosage: 2MG THREE TIMES PER DAY
     Route: 048
     Dates: start: 201201
  7. METFORMIN [Concomitant]
     Dosage: 1000MG THREE TIMES PER DAY
     Dates: start: 201301
  8. OMEPRAZOLE [Concomitant]
     Route: 048
     Dates: start: 201002
  9. ATORVASTATIN [Concomitant]
     Dates: start: 200301

REACTIONS (1)
  - Myocardial infarction [Recovered/Resolved]
